FAERS Safety Report 19330866 (Version 1)
Quarter: 2021Q2

REPORT INFORMATION
  Report Type: Spontaneous
  Country: GB (occurrence: GB)
  Receive Date: 20210528
  Receipt Date: 20210528
  Transmission Date: 20210717
  Serious: Yes (Hospitalization)
  Sender: FDA-Public Use
  Company Number: GB-PFIZER INC-2021582464

PATIENT
  Age: 38 Year
  Sex: Female
  Weight: 97 kg

DRUGS (2)
  1. SULFASALAZINE. [Suspect]
     Active Substance: SULFASALAZINE
     Indication: RHEUMATOID ARTHRITIS
     Dosage: UNK
     Route: 048
     Dates: start: 202103
  2. PREDNISOLONE. [Concomitant]
     Active Substance: PREDNISOLONE
     Indication: ILL-DEFINED DISORDER

REACTIONS (5)
  - Rash [Unknown]
  - Hepatic function abnormal [Unknown]
  - Dermatitis allergic [Recovering/Resolving]
  - Allergic hepatitis [Unknown]
  - Malaise [Unknown]
